FAERS Safety Report 17190534 (Version 1)
Quarter: 2019Q4

REPORT INFORMATION
  Report Type: Spontaneous
  Country: US (occurrence: US)
  Receive Date: 20191129
  Receipt Date: 20191129
  Transmission Date: 20200122
  Serious: Yes (Hospitalization)
  Sender: FDA-Public Use
  Company Number: None

PATIENT
  Age: 61 Year
  Sex: Male
  Weight: 108 kg

DRUGS (1)
  1. ASPIRIN. [Suspect]
     Active Substance: ASPIRIN
     Indication: DIABETES MELLITUS
     Route: 048
     Dates: start: 20190730, end: 20190909

REACTIONS (4)
  - Gastric haemorrhage [None]
  - Dizziness [None]
  - Diarrhoea [None]
  - Anaemia [None]

NARRATIVE: CASE EVENT DATE: 20190909
